FAERS Safety Report 8998322 (Version 3)
Quarter: 2013Q1

REPORT INFORMATION
  Report Type: Spontaneous
  Country: US (occurrence: US)
  Receive Date: 20130104
  Receipt Date: 20130221
  Transmission Date: 20140127
  Serious: No
  Sender: FDA-Public Use
  Company Number: US-PFIZER INC-2013002057

PATIENT
  Age: 59 Year
  Sex: Male

DRUGS (6)
  1. NITROSTAT [Suspect]
     Indication: CHEST PAIN
     Dosage: 0.4 MG, AS NEEDED [1 TABLET UNDER THE TONGUE EVERY 5 MINUTES AS NEEDED FOR CHEST PAIN]
     Route: 060
  2. ENALAPRIL [Concomitant]
     Dosage: 2.5 MG, UNK
  3. LIPITOR [Concomitant]
     Dosage: 80 MG, UNK
  4. OMEPRAZOLE [Concomitant]
     Dosage: 20 MG, UNK
  5. COUMADIN [Concomitant]
     Dosage: 75 MG, UNK
  6. ISOSORBIDE MN [Concomitant]
     Dosage: 30 MG, UNK

REACTIONS (1)
  - Drug ineffective [Recovered/Resolved]
